FAERS Safety Report 12812221 (Version 3)
Quarter: 2016Q4

REPORT INFORMATION
  Report Type: Spontaneous
  Country: US (occurrence: US)
  Receive Date: 20161005
  Receipt Date: 20161219
  Transmission Date: 20170207
  Serious: Yes (Other)
  Sender: FDA-Public Use
  Company Number: US-SA-2016SA181604

PATIENT
  Age: 72 Year
  Sex: Female

DRUGS (5)
  1. LANTUS [Concomitant]
     Active Substance: INSULIN GLARGINE
  2. OXYCODONE [Concomitant]
     Active Substance: OXYCODONE
  3. PRALUENT [Suspect]
     Active Substance: ALIROCUMAB
     Indication: HYPERLIPIDAEMIA
     Route: 058
     Dates: start: 20160711, end: 20161101
  4. ALIROCUMAB PREFILLED PEN [Concomitant]
     Active Substance: ALIROCUMAB
     Indication: HYPERLIPIDAEMIA
     Dates: start: 20160711
  5. GABAPENTIN. [Concomitant]
     Active Substance: GABAPENTIN

REACTIONS (7)
  - Mobility decreased [Unknown]
  - Pain in extremity [Unknown]
  - Injection site pain [Unknown]
  - Pain [Unknown]
  - Abasia [Unknown]
  - Hyperhidrosis [Unknown]
  - Inappropriate schedule of drug administration [Unknown]

NARRATIVE: CASE EVENT DATE: 2016
